FAERS Safety Report 7922220 (Version 8)
Quarter: 2012Q4

REPORT INFORMATION
  Report Type: 
  Country: US (occurrence: US)
  Receive Date: 20110429
  Receipt Date: 20121127
  Transmission Date: 20130627
  Serious: Yes (Hospitalization, Other)
  Sender: FDA-Public Use
  Company Number: US-ASTRAZENECA-2011SE09863

PATIENT
  Age: 65 Year
  Sex: Female
  Weight: 62.6 kg

DRUGS (22)
  1. NEXIUM [Suspect]
     Indication: GASTROOESOPHAGEAL REFLUX DISEASE
     Route: 048
     Dates: end: 20110216
  2. NEXIUM [Suspect]
     Indication: BARRETT^S OESOPHAGUS
     Route: 048
     Dates: end: 20110216
  3. NEXIUM [Suspect]
     Indication: GASTROOESOPHAGEAL REFLUX DISEASE
     Route: 048
  4. NEXIUM [Suspect]
     Indication: BARRETT^S OESOPHAGUS
     Route: 048
  5. CRESTOR [Suspect]
     Route: 048
  6. CARAFATE [Concomitant]
     Dosage: BEFORE MEALS AND AT BEDTIME
     Route: 048
  7. LOVENOX [Concomitant]
     Dosage: 100 MILLIGRAM PER MILLILITER, 30 MILLIGRAM ONCE A DAY
  8. DIOVAN [Concomitant]
  9. ARMOUR THYROID [Concomitant]
  10. MS CONTIN [Concomitant]
  11. SOMA [Concomitant]
  12. CLONIDINE [Concomitant]
  13. AMBIEN [Concomitant]
  14. HYDROCODONE/APAP [Concomitant]
     Dosage: 10/500 MILLIGRAM, ONE TABLET FOUR TIMES A DAY.
  15. MAGNESIUM [Concomitant]
  16. COREG [Concomitant]
  17. FISH OIL [Concomitant]
  18. NEURONTIN [Concomitant]
  19. TRAMADOL [Concomitant]
  20. ASPIRIN [Concomitant]
  21. BENEDRYL [Concomitant]
  22. IODINE [Concomitant]

REACTIONS (23)
  - Pneumonia aspiration [Not Recovered/Not Resolved]
  - Device occlusion [Unknown]
  - Thrombosis [Unknown]
  - Pulmonary oedema [Unknown]
  - Limb crushing injury [Unknown]
  - Barrett^s oesophagus [Unknown]
  - Gastrooesophageal reflux disease [Unknown]
  - Diverticulum [Unknown]
  - Abnormal loss of weight [Unknown]
  - Irritable bowel syndrome [Unknown]
  - Bradycardia [Unknown]
  - Constipation [Unknown]
  - Diarrhoea [Unknown]
  - Oedema peripheral [Unknown]
  - Malaise [Unknown]
  - Sinusitis [Unknown]
  - Hearing impaired [Unknown]
  - Asthma [Unknown]
  - Drug intolerance [Unknown]
  - Off label use [Unknown]
  - Drug dose omission [Unknown]
  - Intentional drug misuse [Unknown]
  - Drug ineffective for unapproved indication [Unknown]
